FAERS Safety Report 9420750 (Version 1)
Quarter: 2013Q3

REPORT INFORMATION
  Report Type: Spontaneous
  Country: US (occurrence: US)
  Receive Date: 20130725
  Receipt Date: 20130725
  Transmission Date: 20140515
  Serious: No
  Sender: FDA-Public Use
  Company Number: US-ABBOTT-13P-163-1086225-00

PATIENT
  Sex: Female

DRUGS (2)
  1. SYNTHROID [Suspect]
     Indication: HYPOTHYROIDISM
  2. TIROSINT [Suspect]
     Indication: HYPOTHYROIDISM
     Dosage: DAILY IN THE MORNING
     Route: 048
     Dates: start: 20121217

REACTIONS (4)
  - Drug intolerance [Unknown]
  - Rash pruritic [Unknown]
  - Palpitations [Unknown]
  - Anxiety [Unknown]
